FAERS Safety Report 15838947 (Version 4)
Quarter: 2019Q1

REPORT INFORMATION
  Report Type: Spontaneous
  Country: US (occurrence: US)
  Receive Date: 20190117
  Receipt Date: 20190326
  Transmission Date: 20190417
  Serious: Yes (Other)
  Sender: FDA-Public Use
  Company Number: US-BRISTOL-MYERS SQUIBB COMPANY-BMS-2019-003943

PATIENT
  Sex: Female
  Weight: 58.96 kg

DRUGS (1)
  1. ORENCIA [Suspect]
     Active Substance: ABATACEPT
     Indication: RHEUMATOID ARTHRITIS
     Dosage: 125 MG, QWK AS DIRECTED
     Route: 058
     Dates: start: 201812

REACTIONS (4)
  - Ear infection [Unknown]
  - Influenza [Unknown]
  - Tooth abscess [Unknown]
  - Malaise [Unknown]
